FAERS Safety Report 17094480 (Version 5)
Quarter: 2020Q1

REPORT INFORMATION
  Report Type: Spontaneous
  Country: JP (occurrence: JP)
  Receive Date: 20191129
  Receipt Date: 20200302
  Transmission Date: 20200409
  Serious: Yes (Hospitalization, Other)
  Sender: FDA-Public Use
  Company Number: JP-B.I. PHARMACEUTICALS,INC./RIDGEFIELD-2019-NB-116942

PATIENT
  Age: 83 Year
  Sex: Female

DRUGS (1)
  1. PRAZAXA [Suspect]
     Active Substance: DABIGATRAN ETEXILATE MESYLATE
     Indication: PRODUCT USED FOR UNKNOWN INDICATION
     Route: 048
     Dates: end: 20191123

REACTIONS (3)
  - Subdural haematoma [Recovered/Resolved]
  - Fall [Recovered/Resolved]
  - Injury [Recovered/Resolved]

NARRATIVE: CASE EVENT DATE: 20191123
